FAERS Safety Report 15129200 (Version 1)
Quarter: 2018Q3

REPORT INFORMATION
  Report Type: Spontaneous
  Country: US (occurrence: US)
  Receive Date: 20180614
  Receipt Date: 20180614
  Transmission Date: 20181010
  Serious: Yes (Death)
  Sender: FDA-Public Use
  Company Number: None

PATIENT
  Age: 90 Year
  Sex: Female

DRUGS (1)
  1. POMALYST [Suspect]
     Active Substance: POMALIDOMIDE
     Indication: PLASMA CELL MYELOMA
     Route: 048
     Dates: start: 20170929, end: 20180101

REACTIONS (4)
  - Influenza [None]
  - Cardiac arrest [None]
  - Sepsis [None]
  - Bradycardia [None]

NARRATIVE: CASE EVENT DATE: 20180101
